FAERS Safety Report 23185857 (Version 1)
Quarter: 2023Q4

REPORT INFORMATION
  Report Type: Spontaneous
  Country: US (occurrence: None)
  Receive Date: 20231114
  Receipt Date: 20231114
  Transmission Date: 20240110
  Serious: Yes (Life-Threatening, Hospitalization, Other)
  Sender: FDA-Public Use
  Company Number: None

PATIENT
  Age: 30 Year
  Sex: Female

DRUGS (2)
  1. OTEZLA [Suspect]
     Active Substance: APREMILAST
     Dosage: FREQUENCY : TWICE A DAY;?
     Route: 048
     Dates: start: 20231102
  2. TELMISARTAN [Concomitant]
     Active Substance: TELMISARTAN

REACTIONS (8)
  - Nonspecific reaction [None]
  - Blood pressure inadequately controlled [None]
  - Nausea [None]
  - Diarrhoea [None]
  - Migraine [None]
  - Dizziness [None]
  - Treatment noncompliance [None]
  - Therapy cessation [None]
